FAERS Safety Report 22293216 (Version 1)
Quarter: 2023Q2

REPORT INFORMATION
  Report Type: Spontaneous
  Country: US (occurrence: US)
  Receive Date: 20230508
  Receipt Date: 20230508
  Transmission Date: 20230721
  Serious: No
  Sender: FDA-Public Use
  Company Number: US-CIPLA LTD.-2022US06932

PATIENT

DRUGS (1)
  1. EXEMESTANE [Suspect]
     Active Substance: EXEMESTANE
     Indication: Breast cancer
     Dosage: UNK
     Route: 065

REACTIONS (6)
  - Musculoskeletal discomfort [Not Recovered/Not Resolved]
  - Muscle discomfort [Unknown]
  - Treatment noncompliance [Unknown]
  - Pain [Recovered/Resolved]
  - Pain in extremity [Recovered/Resolved]
  - Arthralgia [Recovered/Resolved]
